FAERS Safety Report 14935385 (Version 5)
Quarter: 2018Q2

REPORT INFORMATION
  Report Type: Spontaneous
  Country: TW (occurrence: TW)
  Receive Date: 20180524
  Receipt Date: 20180625
  Transmission Date: 20180711
  Serious: Yes (Death, Other)
  Sender: FDA-Public Use
  Company Number: TW-JNJFOC-20180532784

PATIENT
  Age: 63 Year
  Sex: Female
  Weight: 62 kg

DRUGS (8)
  1. ACTEIN [Concomitant]
     Route: 048
  2. LUNGTEC [Concomitant]
     Route: 048
  3. IMOVANE [Concomitant]
     Active Substance: ZOPICLONE
     Route: 048
  4. YONDELIS [Suspect]
     Active Substance: TRABECTEDIN
     Indication: MALIGNANT MENINGIOMA METASTATIC
     Route: 042
     Dates: start: 20170606
  5. ULTRACET [Concomitant]
     Active Substance: ACETAMINOPHEN\TRAMADOL HYDROCHLORIDE
     Route: 048
  6. MEGEST [Concomitant]
     Route: 048
  7. SEROQUEL [Concomitant]
     Active Substance: QUETIAPINE FUMARATE
     Route: 048
  8. DEX-CTM [Concomitant]
     Route: 048

REACTIONS (5)
  - Pneumonia [Unknown]
  - Product use in unapproved indication [Unknown]
  - Septic shock [Fatal]
  - Febrile neutropenia [Not Recovered/Not Resolved]
  - Off label use [Unknown]

NARRATIVE: CASE EVENT DATE: 20170606
